FAERS Safety Report 10378572 (Version 1)
Quarter: 2014Q3

REPORT INFORMATION
  Report Type: Spontaneous
  Country: FR (occurrence: FR)
  Receive Date: 20140812
  Receipt Date: 20140812
  Transmission Date: 20150326
  Serious: Yes (Death)
  Sender: FDA-Public Use
  Company Number: FR-ELI_LILLY_AND_COMPANY-FR201408000897

PATIENT
  Age: 45 Year
  Sex: Male

DRUGS (5)
  1. ZYPREXA [Suspect]
     Active Substance: OLANZAPINE
     Indication: SCHIZOPHRENIA, DISORGANISED TYPE
     Dosage: 40 MG, QD
     Route: 048
     Dates: start: 2005
  2. HALDOL DECANOATE [Suspect]
     Active Substance: HALOPERIDOL DECANOATE
     Indication: SCHIZOPHRENIA, DISORGANISED TYPE
     Dosage: 300 MG, EVERY 21 DAYS
     Route: 030
     Dates: start: 1996, end: 20140708
  3. TEMESTA                            /00273201/ [Suspect]
     Active Substance: LORAZEPAM
     Indication: ANXIETY DISORDER
     Dosage: 2.5 MG, QID
     Route: 048
     Dates: start: 2008
  4. METHADONE [Suspect]
     Active Substance: METHADONE HYDROCHLORIDE
     Indication: DRUG DEPENDENCE
     Dosage: 60 MG, QD
     Route: 048
     Dates: start: 2008
  5. LEPTICUR [Suspect]
     Active Substance: TROPATEPINE HYDROCHLORIDE
     Indication: PARKINSONISM
     Dosage: 10 MG, TID
     Route: 048
     Dates: start: 1992

REACTIONS (3)
  - Psychiatric decompensation [Unknown]
  - Death [Fatal]
  - Overdose [Unknown]
